FAERS Safety Report 24639379 (Version 1)
Quarter: 2024Q4

REPORT INFORMATION
  Report Type: Spontaneous
  Country: US (occurrence: US)
  Receive Date: 20241119
  Receipt Date: 20241119
  Transmission Date: 20250114
  Serious: No
  Sender: ELI LILLY AND COMPANY
  Company Number: US-ELI_LILLY_AND_COMPANY-US202411010157

PATIENT
  Age: 16 Year
  Sex: Female

DRUGS (1)
  1. TALTZ [Suspect]
     Active Substance: IXEKIZUMAB
     Indication: Juvenile spondyloarthritis
     Dosage: 80 MG, OTHER, EVERY 4 WEEKS
     Route: 058

REACTIONS (2)
  - Off label use [Unknown]
  - Diarrhoea [Unknown]
